FAERS Safety Report 18124984 (Version 1)
Quarter: 2020Q3

REPORT INFORMATION
  Report Type: Report from Study
  Country: CA (occurrence: CA)
  Receive Date: 20200807
  Receipt Date: 20200807
  Transmission Date: 20201103
  Serious: Yes (Death)
  Sender: FDA-Public Use
  Company Number: CA-EXELIXIS-CABO-20031877

PATIENT
  Age: 76 Year
  Sex: Male

DRUGS (9)
  1. PAXIL [Concomitant]
     Active Substance: PAROXETINE HYDROCHLORIDE
  2. PANTOLOC [Concomitant]
     Active Substance: PANTOPRAZOLE SODIUM
  3. GLUCOSAMINE [Concomitant]
     Active Substance: GLUCOSAMINE
  4. CENTRUM 50+ [Concomitant]
     Active Substance: VITAMINS
  5. HYDROMORPHONE [Concomitant]
     Active Substance: HYDROMORPHONE
  6. VITAMIN D [Concomitant]
     Active Substance: VITAMIN D NOS
  7. CABOMETYX [Suspect]
     Active Substance: CABOZANTINIB S-MALATE
     Indication: RENAL CELL CARCINOMA
     Dosage: 60 MG, QD
     Route: 048
     Dates: start: 20191001
  8. CANDESARTAN. [Concomitant]
     Active Substance: CANDESARTAN
  9. CHONDROITIN [Concomitant]
     Active Substance: CHONDROITIN

REACTIONS (1)
  - Death [Fatal]

NARRATIVE: CASE EVENT DATE: 20191228
